FAERS Safety Report 4750898-2 (Version None)
Quarter: 2005Q3

REPORT INFORMATION
  Report Type: 
  Country: None (occurrence: None)
  Receive Date: 20050818
  Receipt Date: 20050805
  Transmission Date: 20060218
  Serious: Yes (Other)
  Sender: FDA-Public Use
  Company Number: 2005113022

PATIENT
  Sex: Male
  Weight: 117.9352 kg

DRUGS (7)
  1. CELEBREX [Suspect]
     Indication: ILL-DEFINED DISORDER
  2. CELEBREX [Suspect]
     Indication: PAIN
  3. BEXTRA [Suspect]
     Indication: ARTHRITIS
  4. BEXTRA [Suspect]
     Indication: PAIN
  5. VIAGRA [Suspect]
     Indication: ILL-DEFINED DISORDER
     Dates: start: 19990101, end: 20050701
  6. VIOXX [Concomitant]
  7. LOTREL [Concomitant]

REACTIONS (9)
  - ARTHRITIS [None]
  - BLINDNESS [None]
  - BLOOD CHOLESTEROL INCREASED [None]
  - CEREBROVASCULAR ACCIDENT [None]
  - DYSPNOEA [None]
  - GRAND MAL CONVULSION [None]
  - MALAISE [None]
  - PAIN [None]
  - VISUAL FIELD DEFECT [None]
